FAERS Safety Report 8305398-X (Version None)
Quarter: 2012Q2

REPORT INFORMATION
  Report Type: 
  Country: None (occurrence: None)
  Receive Date: 20120423
  Receipt Date: 20120412
  Transmission Date: 20120825
  Serious: Yes (Hospitalization)
  Sender: FDA-Public Use
  Company Number: JP-CELGENEUS-087-50794-12041803

PATIENT
  Sex: Male
  Weight: 60 kg

DRUGS (11)
  1. CLARITIN REDITABS [Concomitant]
     Route: 065
     Dates: start: 20111101
  2. VIDAZA [Suspect]
     Dosage: 75 MILLIGRAM/SQ. METER
     Route: 058
     Dates: start: 20111214, end: 20111220
  3. VIDAZA [Suspect]
     Dosage: 75 MILLIGRAM/SQ. METER
     Route: 058
     Dates: start: 20120209, end: 20120215
  4. VIDAZA [Suspect]
     Dosage: 75 MILLIGRAM/SQ. METER
     Route: 058
     Dates: start: 20110822, end: 20110828
  5. VIDAZA [Suspect]
     Dosage: 75 MILLIGRAM/SQ. METER
     Route: 058
     Dates: start: 20111028, end: 20111101
  6. VIDAZA [Suspect]
     Dosage: 75 MILLIGRAM/SQ. METER
     Route: 058
     Dates: start: 20120112, end: 20120118
  7. TAMSULOSIN HCL [Concomitant]
     Route: 065
  8. LEVOFLOXACIN [Concomitant]
     Route: 065
     Dates: start: 20111031, end: 20111105
  9. CARBOCISTEINE [Concomitant]
     Route: 065
     Dates: start: 20111101
  10. VIDAZA [Suspect]
     Dosage: 75 MILLIGRAM/SQ. METER
     Route: 058
     Dates: start: 20110926, end: 20110930
  11. CARVEDILOL [Concomitant]
     Route: 065

REACTIONS (1)
  - SHOCK [None]
